FAERS Safety Report 21300484 (Version 1)
Quarter: 2022Q3

REPORT INFORMATION
  Report Type: Spontaneous
  Country: US (occurrence: None)
  Receive Date: 20220907
  Receipt Date: 20220907
  Transmission Date: 20221026
  Serious: Yes (Death, Other)
  Sender: FDA-Public Use
  Company Number: US-Unichem Pharmaceuticals (USA) Inc-UCM202208-000859

PATIENT
  Age: 69 Year
  Sex: Male

DRUGS (8)
  1. METRONIDAZOLE [Suspect]
     Active Substance: METRONIDAZOLE
     Indication: Peritonitis
     Dosage: UNKNOWN
  2. VANCOMYCIN [Suspect]
     Active Substance: VANCOMYCIN
     Indication: Peritonitis
     Dosage: UNKNOWN
  3. CEFTAZIDIME [Suspect]
     Active Substance: CEFTAZIDIME
     Indication: Peritonitis
     Dosage: UNKNOWN
  4. NYSTATIN [Suspect]
     Active Substance: NYSTATIN
     Indication: Antifungal prophylaxis
     Dosage: UNKNOWN
  5. PIPERACILLIN SODIUM\TAZOBACTAM SODIUM [Suspect]
     Active Substance: PIPERACILLIN SODIUM\TAZOBACTAM SODIUM
     Indication: Product used for unknown indication
     Dosage: UNKNOWN
  6. VANCOMYCIN [Suspect]
     Active Substance: VANCOMYCIN
     Indication: Product used for unknown indication
     Dosage: UNKNOWN
     Route: 033
  7. GENTAMICIN [Suspect]
     Active Substance: GENTAMICIN
     Indication: Product used for unknown indication
     Dosage: UNKNOWN
     Route: 033
  8. FLUCONAZOLE [Suspect]
     Active Substance: FLUCONAZOLE
     Indication: Product used for unknown indication
     Dosage: UNKNOWN
     Route: 033

REACTIONS (5)
  - Aspergillus infection [Fatal]
  - Fungal peritonitis [Fatal]
  - Septic shock [Fatal]
  - Respiratory failure [Fatal]
  - Colitis ischaemic [Fatal]
